FAERS Safety Report 5308903-0 (Version None)
Quarter: 2007Q2

REPORT INFORMATION
  Report Type: 
  Country: None (occurrence: None)
  Receive Date: 20070426
  Receipt Date: 20070417
  Transmission Date: 20071010
  Serious: Yes (Hospitalization)
  Sender: FDA-Public Use
  Company Number: FR-PFIZER INC-2007031074

PATIENT
  Sex: Female
  Weight: 60 kg

DRUGS (5)
  1. SUTENT [Suspect]
     Indication: ADENOCARCINOMA
     Dosage: TEXT:1 DF
     Route: 048
     Dates: start: 20070118
  2. FRAXODI [Suspect]
     Route: 058
     Dates: start: 20070105
  3. LEVOTHYROXINE SODIUM [Concomitant]
  4. LOXEN [Concomitant]
  5. SECTRAL [Concomitant]

REACTIONS (5)
  - ALANINE AMINOTRANSFERASE INCREASED [None]
  - BLOOD ALKALINE PHOSPHATASE INCREASED [None]
  - GAMMA-GLUTAMYLTRANSFERASE INCREASED [None]
  - INFLAMMATION [None]
  - THROMBOCYTHAEMIA [None]
